FAERS Safety Report 25394119 (Version 1)
Quarter: 2025Q2

REPORT INFORMATION
  Report Type: Spontaneous
  Country: US (occurrence: US)
  Receive Date: 20250604
  Receipt Date: 20250604
  Transmission Date: 20250717
  Serious: No
  Sender: AMNEAL
  Company Number: US-AMNEAL PHARMACEUTICALS-2024-AMRX-01407

PATIENT
  Sex: Female

DRUGS (2)
  1. BUPRENORPHINE TRANSDERMAL SYSTEM [Suspect]
     Active Substance: BUPRENORPHINE
     Indication: Product used for unknown indication
     Route: 062
  2. BUTRANS [Suspect]
     Active Substance: BUPRENORPHINE
     Indication: Product used for unknown indication
     Route: 062

REACTIONS (6)
  - Burning sensation [Unknown]
  - Spider vein [Unknown]
  - Throat irritation [Unknown]
  - Dysphonia [Unknown]
  - Contusion [Unknown]
  - Vascular injury [Unknown]
